FAERS Safety Report 5085690-5 (Version None)
Quarter: 2006Q3

REPORT INFORMATION
  Report Type: 
  Country: None (occurrence: None)
  Receive Date: 20060822
  Receipt Date: 20060811
  Transmission Date: 20061208
  Serious: Yes (Other)
  Sender: FDA-Public Use
  Company Number: DE-BRISTOL-MYERS SQUIBB COMPANY-13474119

PATIENT

DRUGS (2)
  1. ABILIFY [Suspect]
  2. CLOZAPINE [Suspect]

REACTIONS (1)
  - DRUG LEVEL INCREASED [None]
